FAERS Safety Report 19589054 (Version 3)
Quarter: 2021Q4

REPORT INFORMATION
  Report Type: Other
  Country: JP (occurrence: JP)
  Receive Date: 20210721
  Receipt Date: 20211022
  Transmission Date: 20220303
  Serious: Yes (Hospitalization)
  Sender: FDA-Public Use
  Company Number: JP-CHUGAI-2021006077

PATIENT
  Age: 63 Year
  Sex: Female
  Weight: 69.5 kg

DRUGS (10)
  1. CELLCEPT [Suspect]
     Active Substance: MYCOPHENOLATE MOFETIL\MYCOPHENOLATE MOFETIL HYDROCHLORIDE
     Indication: Antisynthetase syndrome
     Dosage: ON 05/FEB/2018, LAST DOSE ADMINISTERED.
     Route: 048
     Dates: start: 20180109
  2. CELLCEPT [Suspect]
     Active Substance: MYCOPHENOLATE MOFETIL\MYCOPHENOLATE MOFETIL HYDROCHLORIDE
     Dosage: ON 13/MAR/2018, LAST DOSE ADMINISTERED
     Route: 048
     Dates: start: 20180206
  3. CELLCEPT [Suspect]
     Active Substance: MYCOPHENOLATE MOFETIL\MYCOPHENOLATE MOFETIL HYDROCHLORIDE
     Route: 048
     Dates: start: 20181113
  4. PREDNISOLONE [Suspect]
     Active Substance: PREDNISOLONE
     Indication: Antisynthetase syndrome
     Route: 048
     Dates: start: 20150501
  5. PREDNISOLONE [Suspect]
     Active Substance: PREDNISOLONE
     Dosage: 60 MG
     Route: 048
  6. PREDNISOLONE [Suspect]
     Active Substance: PREDNISOLONE
     Route: 048
  7. NEXIUM [Concomitant]
     Active Substance: ESOMEPRAZOLE MAGNESIUM
     Route: 048
     Dates: start: 20170616
  8. AZOSEMIDE [Concomitant]
     Active Substance: AZOSEMIDE
     Route: 048
     Dates: start: 20170806, end: 20170806
  9. BONALON [Concomitant]
     Active Substance: ALENDRONATE SODIUM
     Route: 048
     Dates: start: 20180619
  10. SULFAMETHOXAZOLE\TRIMETHOPRIM [Concomitant]
     Active Substance: SULFAMETHOXAZOLE\TRIMETHOPRIM
     Route: 048
     Dates: start: 20150504

REACTIONS (2)
  - Mycobacterium avium complex infection [Recovering/Resolving]
  - Off label use [Unknown]

NARRATIVE: CASE EVENT DATE: 20180109
